FAERS Safety Report 11927682 (Version 2)
Quarter: 2016Q2

REPORT INFORMATION
  Report Type: Spontaneous
  Country: US (occurrence: US)
  Receive Date: 20160119
  Receipt Date: 20160414
  Transmission Date: 20160815
  Serious: No
  Sender: FDA-Public Use
  Company Number: US-PFIZER INC-2015468299

PATIENT
  Age: 75 Year
  Sex: Female

DRUGS (1)
  1. IBRANCE [Suspect]
     Active Substance: PALBOCICLIB
     Indication: BREAST CANCER
     Dosage: 75 MG, CYCLIC (TAKE ONE CAPSULE BY MOUTH EVERY DAY FOR 21 DAYS ON AND 7 DAYS OFF AS DIRECTED)
     Route: 048
     Dates: start: 20140530

REACTIONS (1)
  - Nausea [Unknown]
